FAERS Safety Report 7068336-6 (Version None)
Quarter: 2010Q4

REPORT INFORMATION
  Report Type: 
  Country: None (occurrence: None)
  Receive Date: 20101028
  Receipt Date: 20101020
  Transmission Date: 20110411
  Serious: Yes (Other)
  Sender: FDA-Public Use
  Company Number: A0885281A

PATIENT
  Age: 62 Year
  Sex: Female

DRUGS (3)
  1. AVANDIA [Suspect]
     Indication: PRODUCT USED FOR UNKNOWN INDICATION
     Route: 065
  2. LANTUS [Suspect]
     Dosage: 36UNIT PER DAY
     Route: 058
     Dates: start: 20060101
  3. GLIMEPIRIDE [Concomitant]

REACTIONS (7)
  - CATARACT [None]
  - CATARACT OPERATION [None]
  - FLUID RETENTION [None]
  - MYOCARDIAL INFARCTION [None]
  - SWELLING [None]
  - VISUAL ACUITY REDUCED [None]
  - VISUAL IMPAIRMENT [None]
